FAERS Safety Report 6100289-7 (Version None)
Quarter: 2009Q1

REPORT INFORMATION
  Report Type: 
  Country: None (occurrence: None)
  Receive Date: 20090226
  Receipt Date: 20090220
  Transmission Date: 20090719
  Serious: Yes (Other)
  Sender: FDA-Public Use
  Company Number: 100#03#2009-00713

PATIENT
  Age: 71 Year
  Sex: Male

DRUGS (5)
  1. TRAMADOL HCL [Suspect]
     Indication: PAIN
     Dosage: 50 MG TWICE
     Dates: end: 20090101
  2. CODEINE SUL TAB [Suspect]
     Indication: PAIN
     Dates: end: 20090101
  3. DICLOFENAC (DICLOFENAC) [Suspect]
     Indication: PAIN
     Dates: end: 20090101
  4. MADOPAR (BENSERAZIDE HYDROCHLORIDE, LEVODOPA) [Suspect]
     Indication: PARKINSON'S DISEASE
     Dosage: 125 MG FIVE TIMES DAILY 250 MG ONCE DAILY
  5. REQUIP [Suspect]
     Indication: PARKINSON'S DISEASE
     Dosage: 2 MG THREE TIMES DAILY 5 MG THREE TIMES DAILY 7 MG THREE TIMES DAILY
     Route: 048

REACTIONS (4)
  - ASTHENIA [None]
  - DYSSTASIA [None]
  - HALLUCINATION [None]
  - LETHARGY [None]
